FAERS Safety Report 9758540 (Version 1)
Quarter: 2013Q4

REPORT INFORMATION
  Report Type: Spontaneous
  Country: US (occurrence: None)
  Receive Date: 20131216
  Receipt Date: 20131216
  Transmission Date: 20140711
  Serious: No
  Sender: FDA-Public Use
  Company Number: CABO-13002420

PATIENT
  Age: 54 Year
  Sex: Female
  Weight: 63 kg

DRUGS (1)
  1. COMETRIQ (CABOZANTINIB) CAPSULE [Suspect]
     Dosage: 80 MG, QD, ORAL?40 MG, QD, ORAL

REACTIONS (9)
  - Hypoaesthesia [None]
  - Hypoaesthesia oral [None]
  - Renal pain [None]
  - Odynophagia [None]
  - Rash pruritic [None]
  - Stomatitis [None]
  - Constipation [None]
  - Vomiting [None]
  - Dizziness [None]
